FAERS Safety Report 14434979 (Version 1)
Quarter: 2018Q1

REPORT INFORMATION
  Report Type: Spontaneous
  Country: US (occurrence: US)
  Receive Date: 20180124
  Receipt Date: 20180124
  Transmission Date: 20180509
  Serious: No
  Sender: FDA-Public Use
  Company Number: None

PATIENT
  Age: 51 Year
  Sex: Female

DRUGS (22)
  1. REVATIO [Concomitant]
     Active Substance: SILDENAFIL CITRATE
  2. PROMETHAZINE-CODINE [Concomitant]
  3. PROTONIX [Concomitant]
     Active Substance: PANTOPRAZOLE SODIUM
  4. VITAMIN D2 [Concomitant]
     Active Substance: ERGOCALCIFEROL
  5. TIZANIDINE. [Concomitant]
     Active Substance: TIZANIDINE
  6. ZOFRAN [Concomitant]
     Active Substance: ONDANSETRON HYDROCHLORIDE
  7. MVI-MINERALS [Concomitant]
  8. FLOLAN [Concomitant]
     Active Substance: EPOPROSTENOL SODIUM
  9. LORAZEPAM. [Concomitant]
     Active Substance: LORAZEPAM
  10. ACLOVATE [Concomitant]
     Active Substance: ALCLOMETASONE DIPROPIONATE
  11. LASIX [Concomitant]
     Active Substance: FUROSEMIDE
  12. TRACLEER [Suspect]
     Active Substance: BOSENTAN
     Indication: PULMONARY ARTERIAL HYPERTENSION
     Route: 048
     Dates: start: 201412
  13. CEFTIN [Concomitant]
     Active Substance: CEFUROXIME AXETIL
  14. K-TAB [Concomitant]
     Active Substance: POTASSIUM CHLORIDE
  15. GAS-X [Concomitant]
     Active Substance: DIMETHICONE
  16. FLONASE [Concomitant]
     Active Substance: FLUTICASONE PROPIONATE
  17. PROZAC [Concomitant]
     Active Substance: FLUOXETINE HYDROCHLORIDE
  18. VENTOLIN HFA [Concomitant]
     Active Substance: ALBUTEROL SULFATE
  19. GABAPENTIN. [Concomitant]
     Active Substance: GABAPENTIN
  20. PERCOCET [Concomitant]
     Active Substance: ACETAMINOPHEN\OXYCODONE HYDROCHLORIDE
  21. CLARITIN [Concomitant]
     Active Substance: LORATADINE
  22. LACTULOSE. [Concomitant]
     Active Substance: LACTULOSE

REACTIONS (3)
  - Diarrhoea [None]
  - Vomiting [None]
  - Abdominal pain [None]

NARRATIVE: CASE EVENT DATE: 20171227
